FAERS Safety Report 5828261-2 (Version None)
Quarter: 2008Q3

REPORT INFORMATION
  Report Type: 
  Country: None (occurrence: None)
  Receive Date: 20080729
  Receipt Date: 20080721
  Transmission Date: 20090109
  Serious: Yes (Other)
  Sender: FDA-Public Use
  Company Number: CHPA2008US12299

PATIENT
  Age: 34 Year
  Sex: Female

DRUGS (2)
  1. THERAFLU NIGHTTIME SEVERE COLD WARMING SYRUP (NCH)(PARACETAMOL, DIPHEN [Suspect]
     Indication: NASOPHARYNGITIS
     Dosage: 6 TSP, QHS, ORAL
     Route: 048
     Dates: start: 20080720, end: 20080720
  2. ANTIHYPERTENSIVES (NO INGREDIENTS/SUBSTANCES) [Suspect]
     Indication: HYPERTENSION
     Dates: start: 20080720

REACTIONS (1)
  - HALLUCINATION, AUDITORY [None]
